FAERS Safety Report 26186429 (Version 1)
Quarter: 2025Q4

REPORT INFORMATION
  Report Type: Spontaneous
  Country: EU (occurrence: EU)
  Receive Date: 20251222
  Receipt Date: 20251222
  Transmission Date: 20260117
  Serious: Yes (Other)
  Sender: MYLAN
  Company Number: None

PATIENT
  Sex: Male

DRUGS (8)
  1. CLOZAPINE [Suspect]
     Active Substance: CLOZAPINE
     Indication: Product used for unknown indication
     Dosage: 30 DOSAGE FORM, QD (1 DF EQUAL TO 1 TABLET)
     Route: 061
     Dates: start: 20251023, end: 20251023
  2. CLOZAPINE [Suspect]
     Active Substance: CLOZAPINE
     Dosage: 30 DOSAGE FORM, QD (1 DF EQUAL TO 1 TABLET)
     Route: 048
     Dates: start: 20251023, end: 20251023
  3. CLOZAPINE [Suspect]
     Active Substance: CLOZAPINE
     Dosage: 30 DOSAGE FORM, QD (1 DF EQUAL TO 1 TABLET)
     Route: 048
     Dates: start: 20251023, end: 20251023
  4. CLOZAPINE [Suspect]
     Active Substance: CLOZAPINE
     Dosage: 30 DOSAGE FORM, QD (1 DF EQUAL TO 1 TABLET)
     Route: 061
     Dates: start: 20251023, end: 20251023
  5. SERTRALINE [Suspect]
     Active Substance: SERTRALINE HYDROCHLORIDE
     Indication: Product used for unknown indication
     Dosage: 140 DOSAGE FORM, QD (1 DF EQUAL TO 1 TABLET)
     Route: 061
     Dates: start: 20251023, end: 20251023
  6. SERTRALINE [Suspect]
     Active Substance: SERTRALINE HYDROCHLORIDE
     Dosage: 140 DOSAGE FORM, QD (1 DF EQUAL TO 1 TABLET)
     Route: 048
     Dates: start: 20251023, end: 20251023
  7. SERTRALINE [Suspect]
     Active Substance: SERTRALINE HYDROCHLORIDE
     Dosage: 140 DOSAGE FORM, QD (1 DF EQUAL TO 1 TABLET)
     Route: 048
     Dates: start: 20251023, end: 20251023
  8. SERTRALINE [Suspect]
     Active Substance: SERTRALINE HYDROCHLORIDE
     Dosage: 140 DOSAGE FORM, QD (1 DF EQUAL TO 1 TABLET)
     Route: 061
     Dates: start: 20251023, end: 20251023

REACTIONS (3)
  - Suicide attempt [Unknown]
  - Vomiting [Unknown]
  - Intentional overdose [Unknown]

NARRATIVE: CASE EVENT DATE: 20251023
